FAERS Safety Report 12057395 (Version 1)
Quarter: 2016Q1

REPORT INFORMATION
  Report Type: Spontaneous
  Country: AT (occurrence: AT)
  Receive Date: 20160210
  Receipt Date: 20160210
  Transmission Date: 20160526
  Serious: Yes (Other)
  Sender: FDA-Public Use
  Company Number: AT-PFIZER INC-2016065418

PATIENT
  Age: 33 Year
  Sex: Female

DRUGS (6)
  1. ESCITALOPRAM OXALATE. [Suspect]
     Active Substance: ESCITALOPRAM OXALATE
     Indication: PANIC ATTACK
  2. LYRICA [Suspect]
     Active Substance: PREGABALIN
     Indication: ANXIETY DISORDER
     Dosage: 125 MG, DAILY (25-25-25-50)
  3. LYRICA [Suspect]
     Active Substance: PREGABALIN
     Indication: PANIC ATTACK
  4. ESCITALOPRAM OXALATE. [Suspect]
     Active Substance: ESCITALOPRAM OXALATE
     Indication: SOMATIC SYMPTOM DISORDER
  5. LYRICA [Suspect]
     Active Substance: PREGABALIN
     Indication: SOMATIC SYMPTOM DISORDER
  6. ESCITALOPRAM OXALATE. [Suspect]
     Active Substance: ESCITALOPRAM OXALATE
     Indication: ANXIETY DISORDER
     Dosage: 5 MG, UNK

REACTIONS (19)
  - Vision blurred [Unknown]
  - Vertigo [Unknown]
  - Pruritus generalised [Unknown]
  - Disturbance in attention [Unknown]
  - Headache [Unknown]
  - Weight increased [Unknown]
  - Impaired work ability [Unknown]
  - Neck pain [Unknown]
  - Migraine [Unknown]
  - Peripheral coldness [Unknown]
  - Night sweats [Unknown]
  - Intentional product use issue [Unknown]
  - Eye pain [Unknown]
  - Diarrhoea [Unknown]
  - Gait disturbance [Unknown]
  - Mental impairment [Unknown]
  - Nausea [Unknown]
  - Tremor [Unknown]
  - Rash [Unknown]
